FAERS Safety Report 8409779-5 (Version None)
Quarter: 2012Q2

REPORT INFORMATION
  Report Type: 
  Country: None (occurrence: None)
  Receive Date: 20120605
  Receipt Date: 20120529
  Transmission Date: 20120825
  Serious: Yes (Hospitalization)
  Sender: FDA-Public Use
  Company Number: FR-PFIZER INC-2012129597

PATIENT
  Age: 75 Year
  Sex: Male

DRUGS (3)
  1. NEBIVOLOL HCL [Concomitant]
     Indication: HYPERTENSION
     Dosage: UNK
     Dates: end: 20090701
  2. SUTENT [Suspect]
     Dosage: UNK
     Dates: start: 20090604
  3. SUTENT [Suspect]
     Indication: LYMPHADENOPATHY MEDIASTINAL
     Dosage: 50 MG/DAY
     Dates: start: 20090414, end: 20090415

REACTIONS (1)
  - BLOOD PRESSURE INADEQUATELY CONTROLLED [None]
